FAERS Safety Report 10010806 (Version 2)
Quarter: 2014Q2

REPORT INFORMATION
  Report Type: Spontaneous
  Country: IT (occurrence: None)
  Receive Date: 20140311
  Receipt Date: 20140416
  Transmission Date: 20141212
  Serious: Yes (Hospitalization)
  Sender: FDA-Public Use
  Company Number: AUR-APL-2014-02336

PATIENT
  Age: 57 Year
  Sex: Female

DRUGS (4)
  1. AMOXICILLIN [Suspect]
     Indication: ORTHODONTIC PROCEDURE
     Dosage: (1 DOSAGE FORMS, TOTAL), ORAL
     Route: 048
     Dates: start: 20140120, end: 20140120
  2. KETOPROFENE [Suspect]
     Indication: ORTHODONTIC PROCEDURE
     Dosage: (1 DOSAGE FORMS, TOTAL)
     Route: 048
     Dates: start: 20140120, end: 20140120
  3. TRIATEC (PANADEINE CO) [Concomitant]
  4. DIBASE (COLECALCIFEROL) [Concomitant]

REACTIONS (3)
  - Chest pain [None]
  - Erythema [None]
  - Skin reaction [None]
